FAERS Safety Report 5449872-2 (Version None)
Quarter: 2007Q3

REPORT INFORMATION
  Report Type: 
  Country: None (occurrence: None)
  Receive Date: 20070907
  Receipt Date: 20070825
  Transmission Date: 20080115
  Serious: Yes (Death)
  Sender: FDA-Public Use
  Company Number: 2007S1000239

PATIENT

DRUGS (3)
  1. CUBICIN [Suspect]
     Indication: ENDOCARDITIS
     Dosage: 4 MG/KG;Q24H
  2. CUBICIN [Suspect]
     Indication: STAPHYLOCOCCAL INFECTION
     Dosage: 4 MG/KG;Q24H
  3. GENTAMICIN [Concomitant]

REACTIONS (5)
  - ABSCESS RUPTURE [None]
  - AORTIC DISORDER [None]
  - DISEASE RECURRENCE [None]
  - ENDOCARDITIS [None]
  - SEPTIC EMBOLUS [None]
